FAERS Safety Report 7906106-4 (Version None)
Quarter: 2011Q4

REPORT INFORMATION
  Report Type: 
  Country: None (occurrence: None)
  Receive Date: 20111109
  Receipt Date: 20111109
  Transmission Date: 20120403
  Serious: Yes (Hospitalization)
  Sender: FDA-Public Use
  Company Number: None

PATIENT
  Age: 32 Year
  Sex: Male
  Weight: 90.7194 kg

DRUGS (2)
  1. IMITREX [Suspect]
     Indication: MIGRAINE
     Dosage: DATES OF USE: UNKNOWN - 2008? - CURRENT
  2. CYMBALTA [Suspect]
     Indication: DEPRESSION
     Dosage: LOWEST DOSE AVAIL.
     Dates: start: 20110801, end: 20110928

REACTIONS (5)
  - AGGRESSION [None]
  - HOSTILITY [None]
  - INCOHERENT [None]
  - HALLUCINATION [None]
  - DELUSION [None]
